FAERS Safety Report 22641818 (Version 1)
Quarter: 2023Q2

REPORT INFORMATION
  Report Type: Spontaneous
  Country: ES (occurrence: ES)
  Receive Date: 20230626
  Receipt Date: 20230626
  Transmission Date: 20230721
  Serious: Yes (Other)
  Sender: FDA-Public Use
  Company Number: None

PATIENT
  Age: 64 Year
  Sex: Male

DRUGS (1)
  1. ESCITALOPRAM [Suspect]
     Active Substance: ESCITALOPRAM OXALATE
     Indication: Product used for unknown indication
     Dosage: 56 TABLETS
     Route: 065
     Dates: start: 20220922, end: 20221005

REACTIONS (2)
  - Swollen tongue [Unknown]
  - Insomnia [Unknown]

NARRATIVE: CASE EVENT DATE: 20221005
